FAERS Safety Report 10108513 (Version 1)
Quarter: 2014Q2

REPORT INFORMATION
  Report Type: Spontaneous
  Country: US (occurrence: US)
  Receive Date: 20140425
  Receipt Date: 20140425
  Transmission Date: 20141212
  Serious: No
  Sender: FDA-Public Use
  Company Number: US-BIOGENIDEC-2014BI038568

PATIENT
  Age: 67 Year
  Sex: Female

DRUGS (9)
  1. AVONEX [Suspect]
     Indication: MULTIPLE SCLEROSIS
     Route: 030
     Dates: start: 20110322
  2. AMLODIPINE BESYLATE [Concomitant]
  3. BACLOFEN [Concomitant]
  4. DOCUSATE CALCIUM [Concomitant]
  5. ENABLEX [Concomitant]
  6. HYDROCHLOROTHIAZIDE [Concomitant]
  7. PAROXETINE HCL [Concomitant]
  8. PRILOSEC [Concomitant]
  9. WARFARIN SODIUM [Concomitant]

REACTIONS (2)
  - Disease progression [Unknown]
  - Drug ineffective [Unknown]
